FAERS Safety Report 7832111-2 (Version None)
Quarter: 2011Q4

REPORT INFORMATION
  Report Type: 
  Country: None (occurrence: None)
  Receive Date: 20111022
  Receipt Date: 20101018
  Transmission Date: 20120403
  Serious: No
  Sender: FDA-Public Use
  Company Number: US-BAYER-201037424NA

PATIENT
  Age: 71 Year
  Sex: Female

DRUGS (1)
  1. CIPROFLOXACIN [Suspect]
     Indication: INFECTION
     Dosage: 500 MG, UNK
     Dates: start: 20101005

REACTIONS (3)
  - PAIN [None]
  - NO THERAPEUTIC RESPONSE [None]
  - ASTHENIA [None]
